FAERS Safety Report 10241318 (Version 1)
Quarter: 2014Q2

REPORT INFORMATION
  Report Type: Report from Study
  Country: CO (occurrence: CO)
  Receive Date: 20140617
  Receipt Date: 20140617
  Transmission Date: 20141212
  Serious: Yes (Hospitalization, Disabling)
  Sender: FDA-Public Use
  Company Number: CO-BAYER-2014-086514

PATIENT
  Age: 36 Year
  Sex: Female

DRUGS (1)
  1. BETAFERON [Suspect]
     Indication: MULTIPLE SCLEROSIS
     Dosage: UNK UNK, QOD
     Route: 058
     Dates: start: 20080101

REACTIONS (6)
  - Multiple sclerosis relapse [None]
  - Multiple sclerosis [None]
  - Hypoaesthesia [None]
  - Headache [None]
  - Diplopia [None]
  - Vertigo [None]
